FAERS Safety Report 8375261-7 (Version None)
Quarter: 2012Q2

REPORT INFORMATION
  Report Type: 
  Country: None (occurrence: None)
  Receive Date: 20120522
  Receipt Date: 20120516
  Transmission Date: 20120825
  Serious: Yes (Other)
  Sender: FDA-Public Use
  Company Number: SE-BIOGENIDEC-2012BI016750

PATIENT
  Age: 43 Year
  Sex: Male

DRUGS (2)
  1. TYSABRI [Suspect]
     Indication: RELAPSING-REMITTING MULTIPLE SCLEROSIS
     Route: 042
     Dates: start: 20081204, end: 20120418
  2. AMPYRA [Concomitant]
     Dates: start: 20101231, end: 20110518

REACTIONS (3)
  - PROGRESSIVE MULTIFOCAL LEUKOENCEPHALOPATHY [None]
  - URINARY INCONTINENCE [None]
  - FAECAL INCONTINENCE [None]
